FAERS Safety Report 12936748 (Version 1)
Quarter: 2016Q4

REPORT INFORMATION
  Report Type: Spontaneous
  Country: US (occurrence: US)
  Receive Date: 20161114
  Receipt Date: 20161114
  Transmission Date: 20170207
  Serious: Yes (Hospitalization, Other)
  Sender: FDA-Public Use
  Company Number: US-PFIZER INC-2016522549

PATIENT
  Age: 44 Year
  Sex: Female

DRUGS (1)
  1. PHENYTOIN SODIUM. [Suspect]
     Active Substance: PHENYTOIN SODIUM
     Indication: GENERALISED TONIC-CLONIC SEIZURE
     Dosage: 300 MG, DAILY

REACTIONS (3)
  - Pemphigoid [Recovered/Resolved]
  - Toxic epidermal necrolysis [Recovered/Resolved]
  - Subcorneal pustular dermatosis [Recovered/Resolved]
